FAERS Safety Report 9284736 (Version 1)
Quarter: 2013Q2

REPORT INFORMATION
  Report Type: Spontaneous
  Country: US (occurrence: US)
  Receive Date: 20130513
  Receipt Date: 20130513
  Transmission Date: 20140414
  Serious: No
  Sender: FDA-Public Use
  Company Number: US-009507513-1305USA005071

PATIENT
  Age: 35 Year
  Sex: Male

DRUGS (4)
  1. SAPHRIS [Suspect]
     Indication: BIPOLAR I DISORDER
     Dosage: 5 MG, QD
     Route: 060
     Dates: start: 20130408
  2. LITHIUM [Concomitant]
     Dosage: 1500 MG/DAY
  3. LAMICTAL [Concomitant]
  4. ADDERALL TABLETS [Concomitant]

REACTIONS (2)
  - Amnesia [Unknown]
  - Overdose [Unknown]
